FAERS Safety Report 6700317-1 (Version None)
Quarter: 2010Q2

REPORT INFORMATION
  Report Type: 
  Country: None (occurrence: None)
  Receive Date: 20100428
  Receipt Date: 20100420
  Transmission Date: 20101027
  Serious: Yes (Hospitalization)
  Sender: FDA-Public Use
  Company Number: US-SANOFI-AVENTIS-2010SA019910

PATIENT
  Age: 69 Year
  Sex: Female
  Weight: 46.8 kg

DRUGS (11)
  1. MULTAQ [Suspect]
     Indication: ATRIAL FIBRILLATION
     Route: 048
     Dates: start: 20090827, end: 20090903
  2. ALDACTONE [Suspect]
     Route: 048
     Dates: start: 20090501
  3. ALDACTONE [Suspect]
     Indication: HYPERTENSION
     Route: 048
     Dates: start: 20090501
  4. TIKOSYN [Concomitant]
  5. TIKOSYN [Concomitant]
  6. MICARDIS [Concomitant]
     Indication: HYPERTENSION
     Dates: start: 20090501
  7. MICARDIS [Concomitant]
     Dates: start: 20090501
  8. ZOCOR [Concomitant]
     Route: 048
     Dates: start: 20090501
  9. PLAVIX [Concomitant]
     Indication: STENT PLACEMENT
     Route: 048
     Dates: start: 20080101
  10. PLAVIX [Concomitant]
     Indication: ANTIPLATELET THERAPY
     Route: 048
     Dates: start: 20080101
  11. NEXIUM /UNK/ [Concomitant]
     Dates: start: 20080101

REACTIONS (8)
  - ASTHENIA [None]
  - CARDIAC FAILURE CONGESTIVE [None]
  - CONDITION AGGRAVATED [None]
  - DYSPNOEA [None]
  - HYPERKALAEMIA [None]
  - MUSCLE SPASMS [None]
  - OEDEMA PERIPHERAL [None]
  - RENAL FAILURE [None]
